FAERS Safety Report 13281388 (Version 1)
Quarter: 2017Q1

REPORT INFORMATION
  Report Type: Spontaneous
  Country: US (occurrence: US)
  Receive Date: 20170228
  Receipt Date: 20170228
  Transmission Date: 20170428
  Serious: Yes (Other)
  Sender: FDA-Public Use
  Company Number: None

PATIENT
  Age: 2 Year
  Sex: Male
  Weight: 10.8 kg

DRUGS (1)
  1. MIRALAX [Suspect]
     Active Substance: POLYETHYLENE GLYCOL 3350
     Indication: CONSTIPATION
     Dosage: ?          QUANTITY:1 CAP;?
     Route: 048
     Dates: start: 20140929, end: 20170208

REACTIONS (8)
  - Memory impairment [None]
  - Nervous system disorder [None]
  - Abnormal behaviour [None]
  - Drug ineffective [None]
  - Seizure [None]
  - Dysarthria [None]
  - Dysphemia [None]
  - Confusional state [None]

NARRATIVE: CASE EVENT DATE: 20170204
